FAERS Safety Report 8582968-5 (Version None)
Quarter: 2012Q3

REPORT INFORMATION
  Report Type: 
  Country: None (occurrence: None)
  Receive Date: 20120809
  Receipt Date: 20091130
  Transmission Date: 20120928
  Serious: Yes (Other)
  Sender: FDA-Public Use
  Company Number: CO-PFIZER INC-2012191565

PATIENT
  Age: 74 Year
  Sex: Female

DRUGS (6)
  1. ACETYLSALICYLIC ACID [Concomitant]
     Dosage: 100 MG, 1X/DAY
  2. LOSARTAN [Concomitant]
     Dosage: 100 MG, 2X/DAY
  3. LIPITOR [Suspect]
     Indication: DYSLIPIDAEMIA
     Dosage: 10 MG, 1X/DAY
  4. METFORMIN [Concomitant]
     Dosage: 850 MG, 1X/DAY
  5. GLIBENCLAMIDE [Concomitant]
     Dosage: 5 MG, 1X/DAY
  6. AMLODIPINE [Concomitant]
     Dosage: 5 MG, 2X/DAY

REACTIONS (3)
  - HYPERTENSIVE EMERGENCY [None]
  - CHEST PAIN [None]
  - OBESITY [None]
